FAERS Safety Report 6975312-8 (Version None)
Quarter: 2010Q3

REPORT INFORMATION
  Report Type: 
  Country: None (occurrence: None)
  Receive Date: 20100910
  Receipt Date: 20090302
  Transmission Date: 20110219
  Serious: No
  Sender: FDA-Public Use
  Company Number: US-WYE-H08405109

PATIENT
  Sex: Male
  Weight: 70.37 kg

DRUGS (5)
  1. PRISTIQ [Suspect]
     Indication: DEPRESSION
     Route: 048
     Dates: start: 20081214
  2. PYRIDOXINE HYDROCHLORIDE [Concomitant]
  3. LOVAZA [Concomitant]
  4. LIPITOR [Concomitant]
  5. ACETYLSALICYLIC ACID [Concomitant]

REACTIONS (1)
  - BLOOD PRESSURE INCREASED [None]
